FAERS Safety Report 23943259 (Version 5)
Quarter: 2024Q4

REPORT INFORMATION
  Report Type: Report from Study
  Country: US (occurrence: US)
  Receive Date: 20240605
  Receipt Date: 20241228
  Transmission Date: 20250114
  Serious: Yes (Other)
  Sender: JAZZ
  Company Number: US-JAZZ PHARMACEUTICALS-2022-US-021352

PATIENT
  Age: 38 Year
  Sex: Female

DRUGS (35)
  1. XYWAV [Suspect]
     Active Substance: CALCIUM OXYBATE\MAGNESIUM OXYBATE\POTASSIUM OXYBATE\SODIUM OXYBATE
     Indication: Narcolepsy
     Dosage: 4.25G FIRST DOSE AND 4G SECOND DOSE
  2. XYWAV [Suspect]
     Active Substance: CALCIUM OXYBATE\MAGNESIUM OXYBATE\POTASSIUM OXYBATE\SODIUM OXYBATE
     Indication: Cataplexy
     Dosage: 3G TWICE NIGHTLY FOR TWO WEEKS THEN 2.25G TWICE NIGHTLY FOR TWO WEEKS
  3. XYWAV [Suspect]
     Active Substance: CALCIUM OXYBATE\MAGNESIUM OXYBATE\POTASSIUM OXYBATE\SODIUM OXYBATE
     Indication: Somnolence
     Dosage: 2.25 GRAM, BID
     Route: 048
  4. XYWAV [Suspect]
     Active Substance: CALCIUM OXYBATE\MAGNESIUM OXYBATE\POTASSIUM OXYBATE\SODIUM OXYBATE
     Indication: Muscular weakness
  5. MELOXICAM [Concomitant]
     Active Substance: MELOXICAM
  6. TYLENOL WITH CODEINE [Concomitant]
     Active Substance: ACETAMINOPHEN\CODEINE PHOSPHATE
  7. AIMOVIG [Concomitant]
     Active Substance: ERENUMAB\ERENUMAB-AOOE
  8. ALBUTEROL SULFATE [Concomitant]
     Active Substance: ALBUTEROL SULFATE
  9. BUSPIRONE HCL [Concomitant]
     Active Substance: BUSPIRONE HYDROCHLORIDE
  10. DICYCLOMINE HYDROCHLORIDE [Concomitant]
     Active Substance: DICYCLOMINE HYDROCHLORIDE
  11. ELETRIPTAN HYDROBROMIDE [Concomitant]
     Active Substance: ELETRIPTAN HYDROBROMIDE
  12. LEXAPRO [Concomitant]
     Active Substance: ESCITALOPRAM OXALATE
  13. ESTRADIOL [Concomitant]
     Active Substance: ESTRADIOL
  14. GABAPENTIN [Concomitant]
     Active Substance: GABAPENTIN
  15. MOVANTIK [Concomitant]
     Active Substance: NALOXEGOL OXALATE
  16. OMEPRAZOLE [Concomitant]
     Active Substance: OMEPRAZOLE
  17. ATORVASTATIN [Concomitant]
     Active Substance: ATORVASTATIN
  18. PROMETHAZINE [Concomitant]
     Active Substance: PROMETHAZINE HYDROCHLORIDE
  19. TIZANIDINE HYDROCHLORIDE [Concomitant]
     Active Substance: TIZANIDINE HYDROCHLORIDE
  20. TOLTERODINE TARTRATE [Concomitant]
     Active Substance: TOLTERODINE TARTRATE
  21. VITAMIN D2 [Concomitant]
     Active Substance: ERGOCALCIFEROL
  22. VITAMIN C [Concomitant]
     Active Substance: ASCORBIC ACID
  23. FISH OIL\OMEGA-3 FATTY ACIDS [Concomitant]
     Active Substance: FISH OIL\OMEGA-3 FATTY ACIDS
  24. MAGNESIUM OXIDE [Concomitant]
     Active Substance: MAGNESIUM OXIDE
  25. LUTEIN [Concomitant]
     Active Substance: LUTEIN
  26. NURTEC ODT [Concomitant]
     Active Substance: RIMEGEPANT SULFATE
  27. AMOXICILLIN [Concomitant]
     Active Substance: AMOXICILLIN
  28. IPRATROPIUM [Concomitant]
     Active Substance: IPRATROPIUM
     Dosage: UNK
     Route: 045
  29. CELEBREX [Concomitant]
     Active Substance: CELECOXIB
     Dosage: UNK
  30. EFFEXOR [Concomitant]
     Active Substance: VENLAFAXINE HYDROCHLORIDE
     Dosage: UNK (150 MG)
  31. METHOCARBAMOL [Concomitant]
     Active Substance: METHOCARBAMOL
     Dosage: UNK
  32. LYSINE [Concomitant]
     Active Substance: LYSINE
  33. DOCUSATE SODIUM [Concomitant]
     Active Substance: DOCUSATE SODIUM
  34. NAPROXEN SODIUM [Concomitant]
     Active Substance: NAPROXEN SODIUM
  35. ACETAMINOPHEN [Concomitant]
     Active Substance: ACETAMINOPHEN

REACTIONS (12)
  - Surgery [Unknown]
  - Surgery [Unknown]
  - Arthrodesis [Unknown]
  - Depression [Unknown]
  - Respiratory tract infection [Unknown]
  - Constipation [Unknown]
  - Headache [Unknown]
  - Hypotension [Unknown]
  - COVID-19 [Unknown]
  - Illness [Unknown]
  - Off label use [Unknown]
  - Intentional dose omission [Unknown]

NARRATIVE: CASE EVENT DATE: 20230901
